FAERS Safety Report 8936387 (Version 2)
Quarter: 2013Q2

REPORT INFORMATION
  Report Type: Report from Study
  Country: JP (occurrence: JP)
  Receive Date: 20121130
  Receipt Date: 20130501
  Transmission Date: 20140414
  Serious: Yes (Death)
  Sender: FDA-Public Use
  Company Number: JP-ROCHE-1162017

PATIENT
  Age: 90 Year
  Sex: Male

DRUGS (4)
  1. ALTEPLASE [Suspect]
     Indication: EMBOLIC STROKE
     Route: 042
     Dates: start: 20101125, end: 20101125
  2. RADICUT [Concomitant]
     Route: 041
     Dates: start: 20101125, end: 20101201
  3. CLOPIDOGREL [Concomitant]
     Route: 048
     Dates: start: 20101127
  4. WARFARIN POTASSIUM [Concomitant]
     Indication: CEREBRAL INFARCTION

REACTIONS (1)
  - Pneumonia [Fatal]
